FAERS Safety Report 5733851-1 (Version None)
Quarter: 2008Q2

REPORT INFORMATION
  Report Type: 
  Country: None (occurrence: None)
  Receive Date: 20080509
  Receipt Date: 20080428
  Transmission Date: 20081010
  Serious: Yes (Other)
  Sender: FDA-Public Use
  Company Number: US-PFIZER INC-2008037077

PATIENT
  Age: 78 Year
  Sex: Female
  Weight: 85 kg

DRUGS (11)
  1. METRONIDAZOLE TABLET [Interacting]
     Indication: UPPER RESPIRATORY TRACT INFECTION
  2. LEVOFLOXACIN [Suspect]
     Indication: UPPER RESPIRATORY TRACT INFECTION
     Dosage: DAILY DOSE:500MG
  3. WARFARIN SODIUM [Interacting]
     Indication: CEREBROVASCULAR ACCIDENT
     Dosage: DAILY DOSE:7MG
  4. WARFARIN SODIUM [Interacting]
     Indication: ARRHYTHMIA
  5. LEVOTHYROXINE SODIUM [Concomitant]
  6. CITALOPRAM HYDROBROMIDE [Concomitant]
  7. METOPROLOL TARTRATE [Concomitant]
  8. CLONIDINE [Concomitant]
  9. TEGASEROD [Concomitant]
  10. POTASSIUM CHLORIDE [Concomitant]
  11. MONTELUKAST SODIUM [Concomitant]

REACTIONS (2)
  - CEREBRAL HAEMORRHAGE [None]
  - DRUG INTERACTION [None]
